FAERS Safety Report 9975067 (Version 1)
Quarter: 2014Q1

REPORT INFORMATION
  Report Type: Report from Study
  Country: US (occurrence: US)
  Receive Date: 20140306
  Receipt Date: 20140306
  Transmission Date: 20141002
  Serious: No
  Sender: FDA-Public Use
  Company Number: US-ABBVIE-13P-163-1160257-00

PATIENT
  Age: 31 Year
  Sex: Female

DRUGS (7)
  1. HUMIRA [Suspect]
     Indication: CROHN^S DISEASE
     Dates: start: 20130920
  2. CLONAZEPAM [Concomitant]
     Indication: RESTLESS LEGS SYNDROME
  3. CLONIDINE [Concomitant]
     Indication: RESTLESS LEGS SYNDROME
     Dosage: PATCH, WEARS 2 AND CHANGES THEM EVERY 7 DAYS
  4. NEURONTIN [Concomitant]
     Indication: FIBROMYALGIA
  5. AMBIEN [Concomitant]
     Indication: INSOMNIA
  6. PROZAC [Concomitant]
     Indication: DEPRESSION
  7. DICYCLOMINE [Concomitant]
     Indication: CROHN^S DISEASE
     Dosage: AS NEEDED

REACTIONS (4)
  - Pruritus generalised [Not Recovered/Not Resolved]
  - Eye swelling [Not Recovered/Not Resolved]
  - Local swelling [Not Recovered/Not Resolved]
  - Odynophagia [Not Recovered/Not Resolved]
